FAERS Safety Report 23592944 (Version 2)
Quarter: 2024Q2

REPORT INFORMATION
  Report Type: Spontaneous
  Country: US (occurrence: US)
  Receive Date: 20240304
  Receipt Date: 20240614
  Transmission Date: 20240716
  Serious: No
  Sender: FDA-Public Use
  Company Number: US-PFIZER INC-202400055081

PATIENT
  Age: 69 Year
  Sex: Female
  Weight: 103.4 kg

DRUGS (14)
  1. PAXLOVID [Suspect]
     Active Substance: NIRMATRELVIR\RITONAVIR
     Indication: COVID-19 treatment
     Dosage: UNK
     Dates: start: 20240219, end: 20240223
  2. AMOXICILLIN [Concomitant]
     Active Substance: AMOXICILLIN
     Dosage: TAKE 4 CAPSULES BY MOUTH 1 HOUR BEFORE PROCEDURE
     Route: 048
     Dates: start: 20220702
  3. ASTELIN [Concomitant]
     Active Substance: AZELASTINE HYDROCHLORIDE
     Dosage: ADMINISTER 1 SPRAY INTO EACH NOSTRIL TWICE A DAY. USE IN EACH NOSTRIL AS DIRECTED.
     Route: 045
  4. BREO ELLIPTA [Concomitant]
     Active Substance: FLUTICASONE FUROATE\VILANTEROL TRIFENATATE
     Dosage: INHALE 1 PUFF DAILY
  5. CARDIZEM CD [Concomitant]
     Active Substance: DILTIAZEM HYDROCHLORIDE
     Dosage: 300 MG, DAILY
     Route: 048
  6. CRESTOR [Concomitant]
     Active Substance: ROSUVASTATIN CALCIUM
     Dosage: 10 MG, DAILY
     Route: 048
  7. GLUCOPHAGE [Concomitant]
     Active Substance: METFORMIN HYDROCHLORIDE
     Dosage: TAKE 2 TABLETS BY MOUTH TWICE A DAY WITH BREAKFAST AND DINNER
     Route: 048
  8. VITAMINS NOS [Concomitant]
     Active Substance: VITAMINS
     Dosage: 1 DF, DAILY
     Route: 048
  9. PROVENTIL [Concomitant]
     Active Substance: ALBUTEROL
     Indication: Asthma
     Dosage: TAKE 2 PUFFS BY MOUTH EVERY 6HOURS AS NEEDED FOR WHEEZE
  10. PROVENTIL [Concomitant]
     Active Substance: ALBUTEROL
     Indication: Wheezing
  11. TEMOVATE [Concomitant]
     Active Substance: CLOBETASOL PROPIONATE
     Dosage: APPLY TOPICALLY AT BEDTIME AS DIRECTED
     Dates: start: 20220831
  12. VITAMIN B COMPLEX [Concomitant]
     Active Substance: CYANOCOBALAMIN\DEXPANTHENOL\NIACINAMIDE\PYRIDOXINE HYDROCHLORIDE\RIBOFLAVIN 5^-PHOSPHATE SODIUM\THIA
     Dosage: 1 DF, DAILY
     Route: 048
  13. YUVAFEM [Concomitant]
     Active Substance: ESTRADIOL HEMIHYDRATE
     Dosage: USE 1 TABLET VAGINALLY TWICE A WEEK
     Route: 067
     Dates: start: 20220831
  14. COZAAR [Concomitant]
     Active Substance: LOSARTAN POTASSIUM
     Dosage: TAKE 1 TABLET (100MG TOTAL) BY MOUTH DAILY
     Route: 048

REACTIONS (2)
  - COVID-19 [Recovered/Resolved]
  - Disease recurrence [Recovered/Resolved]

NARRATIVE: CASE EVENT DATE: 20240229
